FAERS Safety Report 6805935-8 (Version None)
Quarter: 2010Q2

REPORT INFORMATION
  Report Type: 
  Country: None (occurrence: None)
  Receive Date: 20100629
  Receipt Date: 20080103
  Transmission Date: 20101027
  Serious: Yes (Hospitalization, Other)
  Sender: FDA-Public Use
  Company Number: US-PFIZER INC-2007094140

PATIENT
  Sex: Male
  Weight: 180 kg

DRUGS (3)
  1. BEXTRA [Suspect]
     Indication: PAIN
     Dates: start: 20040101, end: 20050101
  2. VITAMINS [Concomitant]
  3. LISINOPRIL [Concomitant]

REACTIONS (2)
  - DIABETES MELLITUS [None]
  - MYOCARDIAL INFARCTION [None]
